FAERS Safety Report 5955541-2 (Version None)
Quarter: 2008Q4

REPORT INFORMATION
  Report Type: 
  Country: None (occurrence: None)
  Receive Date: 20081117
  Receipt Date: 20081110
  Transmission Date: 20090506
  Serious: Yes (Other)
  Sender: FDA-Public Use
  Company Number: BR-PFIZER INC-2008077172

PATIENT
  Sex: Female
  Weight: 72 kg

DRUGS (3)
  1. CHAMPIX [Suspect]
     Indication: SMOKING CESSATION THERAPY
     Route: 048
     Dates: start: 20080826, end: 20080101
  2. AAS [Concomitant]
     Indication: CEREBROVASCULAR ACCIDENT PROPHYLAXIS
  3. AAS [Concomitant]
     Indication: THROMBOSIS PROPHYLAXIS

REACTIONS (7)
  - ABNORMAL DREAMS [None]
  - ANOREXIA [None]
  - CRYING [None]
  - DEPRESSION [None]
  - LABYRINTHITIS [None]
  - SOMNOLENCE [None]
  - SUICIDAL IDEATION [None]
